APPROVED DRUG PRODUCT: EXEMESTANE
Active Ingredient: EXEMESTANE
Strength: 25MG
Dosage Form/Route: TABLET;ORAL
Application: A200898 | Product #001
Applicant: ALVOGEN INC
Approved: Jul 28, 2014 | RLD: No | RS: No | Type: DISCN